FAERS Safety Report 9953611 (Version 1)
Quarter: 2014Q1

REPORT INFORMATION
  Report Type: Spontaneous
  Country: US (occurrence: US)
  Receive Date: 20140304
  Receipt Date: 20140304
  Transmission Date: 20141002
  Serious: No
  Sender: FDA-Public Use
  Company Number: US-ABBVIE-13P-163-1082228-00

PATIENT
  Age: 39 Year
  Sex: Female

DRUGS (5)
  1. HUMIRA [Suspect]
     Indication: CROHN^S DISEASE
     Dates: start: 20130322
  2. SULFASALAZINE [Concomitant]
     Indication: CROHN^S DISEASE
  3. VALTREX [Concomitant]
     Indication: ORAL HERPES
  4. PROBIOTIC [Concomitant]
     Indication: PROPHYLAXIS
  5. IMODIUM [Concomitant]
     Indication: DIARRHOEA

REACTIONS (2)
  - Incorrect dose administered [Not Recovered/Not Resolved]
  - Malaise [Unknown]
